FAERS Safety Report 7048685-8 (Version None)
Quarter: 2010Q4

REPORT INFORMATION
  Report Type: 
  Country: None (occurrence: None)
  Receive Date: 20101018
  Receipt Date: 20101007
  Transmission Date: 20110411
  Serious: Yes (Other)
  Sender: FDA-Public Use
  Company Number: ES-BIOGENIDEC-2010BI031402

PATIENT
  Age: 39 Year
  Sex: Male

DRUGS (4)
  1. TYSABRI [Suspect]
     Indication: MULTIPLE SCLEROSIS
     Route: 042
     Dates: start: 20090201, end: 20100814
  2. TRIFLUSAL [Concomitant]
  3. OXCARBAZEPINE [Concomitant]
  4. BACLOFEN [Concomitant]

REACTIONS (1)
  - COGNITIVE DISORDER [None]
